FAERS Safety Report 9356332 (Version 1)
Quarter: 2013Q2

REPORT INFORMATION
  Report Type: Report from Study
  Country: US (occurrence: US)
  Receive Date: 20130619
  Receipt Date: 20130619
  Transmission Date: 20140414
  Serious: Yes (Hospitalization)
  Sender: FDA-Public Use
  Company Number: US-ABBOTT-13P-163-1102966-00

PATIENT
  Age: 86 Year
  Sex: Male

DRUGS (3)
  1. ANDROGEL [Suspect]
     Indication: BLOOD TESTOSTERONE DECREASED
     Route: 061
     Dates: start: 20120627, end: 20121003
  2. ANDROGEL [Suspect]
     Route: 061
     Dates: start: 20121004, end: 20130320
  3. ANDROGEL [Suspect]
     Route: 061
     Dates: start: 20130331

REACTIONS (2)
  - Angina unstable [Recovered/Resolved]
  - Cardiac stress test abnormal [Recovered/Resolved]
